FAERS Safety Report 8387183-6 (Version None)
Quarter: 2012Q2

REPORT INFORMATION
  Report Type: 
  Country: None (occurrence: None)
  Receive Date: 20120525
  Receipt Date: 20120514
  Transmission Date: 20120825
  Serious: Yes (Other)
  Sender: FDA-Public Use
  Company Number: US-ROCHE-1040780

PATIENT
  Sex: Female
  Weight: 52.21 kg

DRUGS (3)
  1. ACCUTANE [Suspect]
     Dates: start: 20020205
  2. ACCUTANE [Suspect]
     Indication: ACNE
     Dates: start: 20000101, end: 20020101
  3. MINOCYCLINE HCL [Concomitant]
     Dates: start: 20010413

REACTIONS (8)
  - COLITIS ULCERATIVE [None]
  - BLOOD CHOLESTEROL INCREASED [None]
  - HEPATIC ENZYME INCREASED [None]
  - SYNCOPE [None]
  - IRRITABLE BOWEL SYNDROME [None]
  - DRY SKIN [None]
  - DEPRESSION [None]
  - HEADACHE [None]
